FAERS Safety Report 15009106 (Version 1)
Quarter: 2018Q2

REPORT INFORMATION
  Report Type: Spontaneous
  Country: DK (occurrence: DK)
  Receive Date: 20180614
  Receipt Date: 20180614
  Transmission Date: 20180711
  Serious: Yes (Congenital Anomaly)
  Sender: FDA-Public Use
  Company Number: DK-TEVA-2018-DK-907722

PATIENT
  Age: 0 Day
  Sex: Male

DRUGS (1)
  1. PANTOPRAZOL ^ACTAVIS^ [Suspect]
     Active Substance: PANTOPRAZOLE SODIUM
     Indication: GASTRIC PH DECREASED
     Dosage: STRENGTH: NOT KNOWN. DOSE: NOT KNOWN
     Route: 064
     Dates: start: 2015

REACTIONS (1)
  - Oesophageal atresia [Recovered/Resolved with Sequelae]

NARRATIVE: CASE EVENT DATE: 2015
